FAERS Safety Report 5176424-4 (Version None)
Quarter: 2006Q4

REPORT INFORMATION
  Report Type: 
  Country: None (occurrence: None)
  Receive Date: 20061215
  Receipt Date: 20061201
  Transmission Date: 20070319
  Serious: Yes (Hospitalization)
  Sender: FDA-Public Use
  Company Number: PHBS2006FR18635

PATIENT
  Age: 83 Year
  Sex: Female

DRUGS (5)
  1. CARTEOL  (NVO) [Suspect]
     Indication: GLAUCOMA
     Dosage: 1 DRP, QD
  2. EFFEXOR [Suspect]
     Route: 048
     Dates: start: 20060701, end: 20060803
  3. XALATAN [Suspect]
     Indication: GLAUCOMA
     Dosage: 1 DRP, QD
  4. FORTZAAR [Suspect]
     Indication: HYPERTENSION
     Dosage: 1 DF, QD
     Route: 048
     Dates: end: 20061009
  5. CELIPROLOL [Suspect]
     Indication: HYPERTENSION
     Dosage: 200 MG, UNK
     Route: 048
     Dates: end: 20061009

REACTIONS (3)
  - HAEMARTHROSIS [None]
  - IDIOPATHIC THROMBOCYTOPENIC PURPURA [None]
  - PLATELET COUNT DECREASED [None]
